FAERS Safety Report 4408843-5 (Version None)
Quarter: 2004Q3

REPORT INFORMATION
  Report Type: 
  Country: None (occurrence: None)
  Receive Date: 20040722
  Receipt Date: 20040708
  Transmission Date: 20050211
  Serious: Yes (Death, Hospitalization)
  Sender: FDA-Public Use
  Company Number: 173641

PATIENT
  Age: 70 Year
  Sex: Female

DRUGS (1)
  1. AVONEX [Suspect]
     Indication: MULTIPLE SCLEROSIS
     Dosage: 30 MCG QW IM
     Route: 030
     Dates: start: 19990201, end: 20030630

REACTIONS (13)
  - BLOOD DISORDER [None]
  - BLOOD SODIUM DECREASED [None]
  - BONE MARROW DEPRESSION [None]
  - CORONARY ARTERY SURGERY [None]
  - HAEMORRHAGE [None]
  - HYPERNATRAEMIA [None]
  - MULTIPLE SCLEROSIS [None]
  - MYOCARDIAL INFARCTION [None]
  - RASH [None]
  - RED BLOOD CELL COUNT DECREASED [None]
  - RHEUMATOID ARTHRITIS [None]
  - STENT PLACEMENT [None]
  - WHITE BLOOD CELL COUNT DECREASED [None]
